FAERS Safety Report 25273472 (Version 1)
Quarter: 2025Q2

REPORT INFORMATION
  Report Type: Spontaneous
  Country: US (occurrence: US)
  Receive Date: 20250506
  Receipt Date: 20250506
  Transmission Date: 20250717
  Serious: No
  Sender: DAIICHI
  Company Number: US-DAIICHI SANKYO, INC.-DS-2025-139278-USAA

PATIENT
  Age: 38 Year
  Sex: Female

DRUGS (1)
  1. ENHERTU [Suspect]
     Active Substance: FAM-TRASTUZUMAB DERUXTECAN-NXKI
     Indication: HER2 mutant non-small cell lung cancer
     Dosage: UNK UNK, ONCE EVERY 3 WK
     Route: 042
     Dates: start: 202501

REACTIONS (1)
  - Feeling abnormal [Unknown]
